FAERS Safety Report 15483517 (Version 1)
Quarter: 2018Q4

REPORT INFORMATION
  Report Type: Spontaneous
  Country: US (occurrence: US)
  Receive Date: 20181010
  Receipt Date: 20181010
  Transmission Date: 20190205
  Serious: Yes (Other)
  Sender: FDA-Public Use
  Company Number: None

PATIENT
  Age: 35 Year
  Sex: Male
  Weight: 93.4 kg

DRUGS (3)
  1. HUMIRA [Suspect]
     Active Substance: ADALIMUMAB
     Indication: COLITIS ULCERATIVE
     Dosage: ?          OTHER FREQUENCY:WEEKLY;?
     Route: 058
  2. METHOTREXATE. [Concomitant]
     Active Substance: METHOTREXATE
     Dates: start: 20150424
  3. BALSALAZIDE [Concomitant]
     Active Substance: BALSALAZIDE
     Dates: start: 20160601

REACTIONS (2)
  - Oedema peripheral [None]
  - Post procedural complication [None]

NARRATIVE: CASE EVENT DATE: 20180829
